FAERS Safety Report 5382850-0 (Version None)
Quarter: 2007Q3

REPORT INFORMATION
  Report Type: 
  Country: None (occurrence: None)
  Receive Date: 20070705
  Receipt Date: 20070621
  Transmission Date: 20080115
  Serious: Yes (Other)
  Sender: FDA-Public Use
  Company Number: 2007SP010997

PATIENT
  Age: 52 Year
  Sex: Male

DRUGS (2)
  1. PEG-INTRON [Suspect]
     Indication: HEPATITIS C
     Dosage: QW; SC
     Route: 058
     Dates: start: 20070415
  2. REBETOL [Suspect]
     Indication: HEPATITIS C
     Dosage: 1200 MG QD PO
     Route: 048
     Dates: start: 20070415

REACTIONS (4)
  - BLADDER OPERATION [None]
  - DIVERTICULITIS [None]
  - INFLAMMATION [None]
  - URGE INCONTINENCE [None]
